FAERS Safety Report 7689510-1 (Version None)
Quarter: 2011Q3

REPORT INFORMATION
  Report Type: 
  Country: None (occurrence: None)
  Receive Date: 20110817
  Receipt Date: 20110621
  Transmission Date: 20111222
  Serious: No
  Sender: FDA-Public Use
  Company Number: US-TYCO HEALTHCARE/MALLINCKRODT-T201101272

PATIENT
  Sex: Female
  Weight: 63.492 kg

DRUGS (2)
  1. FENTANYL-100 [Suspect]
     Indication: BACK PAIN
     Dosage: 100 UG/HR, Q 72 HR
     Route: 062
     Dates: start: 20110528
  2. FENTANYL-100 [Suspect]
     Dosage: 75 UG/HR, Q72 HR
     Route: 062
     Dates: start: 20110528

REACTIONS (2)
  - DRUG EFFECT DECREASED [None]
  - INAPPROPRIATE SCHEDULE OF DRUG ADMINISTRATION [None]
